FAERS Safety Report 5807931-6 (Version None)
Quarter: 2008Q3

REPORT INFORMATION
  Report Type: 
  Country: None (occurrence: None)
  Receive Date: 20080711
  Receipt Date: 20080630
  Transmission Date: 20090109
  Serious: Yes (Other)
  Sender: FDA-Public Use
  Company Number: US-PFIZER INC-2008055458

PATIENT
  Sex: Female
  Weight: 81.6 kg

DRUGS (7)
  1. LYRICA [Suspect]
     Indication: FIBROMYALGIA
  2. MAXZIDE [Concomitant]
  3. ESTRACE [Concomitant]
  4. ACETYLSALICYLIC ACID SRT [Concomitant]
  5. TENORMIN [Concomitant]
  6. PRILOSEC [Concomitant]
  7. ELAVIL [Concomitant]

REACTIONS (4)
  - ASTHENIA [None]
  - FALL [None]
  - FIBROMYALGIA [None]
  - WALKING AID USER [None]
